FAERS Safety Report 8777423 (Version 2)
Quarter: 2013Q1

REPORT INFORMATION
  Report Type: Report from Study
  Country: CA (occurrence: CA)
  Receive Date: 20120911
  Receipt Date: 20130115
  Transmission Date: 20140127
  Serious: Yes (Hospitalization)
  Sender: FDA-Public Use
  Company Number: CA-BRISTOL-MYERS SQUIBB COMPANY-16572190

PATIENT
  Age: 80 Year
  Sex: Female

DRUGS (3)
  1. ORENCIA [Suspect]
     Indication: RHEUMATOID ARTHRITIS
     Dosage: LAST DOSE:04-APR-2012,14-MAY12,10AUG12?7 INFUSIONS?LOT#2C80093 EXP:SEP2014
     Route: 042
     Dates: start: 20120305
  2. AMOXIL [Concomitant]
  3. TYLENOL [Concomitant]

REACTIONS (5)
  - Memory impairment [Not Recovered/Not Resolved]
  - Bone pain [Unknown]
  - Cough [Unknown]
  - Nasal congestion [Unknown]
  - Lower respiratory tract infection [Unknown]
